FAERS Safety Report 21362881 (Version 1)
Quarter: 2022Q3

REPORT INFORMATION
  Report Type: Spontaneous
  Country: US (occurrence: None)
  Receive Date: 20220922
  Receipt Date: 20220922
  Transmission Date: 20221026
  Serious: Yes (Hospitalization)
  Sender: FDA-Public Use
  Company Number: 2022A319548

PATIENT
  Age: 70 Year
  Sex: Female

DRUGS (1)
  1. IMFINZI [Suspect]
     Active Substance: DURVALUMAB
     Indication: Gallbladder adenocarcinoma
     Route: 042
     Dates: start: 20220708, end: 20220804

REACTIONS (3)
  - Hydronephrosis [Not Recovered/Not Resolved]
  - Ureteric stenosis [Not Recovered/Not Resolved]
  - Acute kidney injury [Not Recovered/Not Resolved]

NARRATIVE: CASE EVENT DATE: 20220811
